FAERS Safety Report 24029377 (Version 1)
Quarter: 2024Q2

REPORT INFORMATION
  Report Type: Other
  Country: JP (occurrence: JP)
  Receive Date: 20240628
  Receipt Date: 20240628
  Transmission Date: 20240715
  Serious: Yes (Hospitalization)
  Sender: FDA-Public Use
  Company Number: JP-Merck Healthcare KGaA-2024034058

PATIENT
  Age: 44 Year
  Sex: Female

DRUGS (2)
  1. METGLUCO [Suspect]
     Active Substance: METFORMIN HYDROCHLORIDE
     Indication: Product used for unknown indication
     Route: 048
  2. JARDIANCE [Suspect]
     Active Substance: EMPAGLIFLOZIN
     Indication: Product used for unknown indication
     Dosage: UNKNOWN
     Route: 048

REACTIONS (11)
  - Eating disorder [Recovered/Resolved]
  - Visual field defect [Recovered/Resolved]
  - Oropharyngeal pain [Recovered/Resolved]
  - Hypophagia [Recovered/Resolved]
  - Renal disorder [Recovered/Resolved]
  - Anuria [Recovered/Resolved]
  - Blood urea increased [Recovered/Resolved]
  - Blood creatine increased [Recovered/Resolved]
  - Ketosis [Recovered/Resolved]
  - Osmotic demyelination syndrome [Recovered/Resolved]
  - Lactic acidosis [Recovered/Resolved]
